FAERS Safety Report 24066694 (Version 1)
Quarter: 2024Q3

REPORT INFORMATION
  Report Type: Spontaneous
  Country: US (occurrence: None)
  Receive Date: 20240709
  Receipt Date: 20240709
  Transmission Date: 20241017
  Serious: Yes (Disabling, Other)
  Sender: Public
  Company Number: None

PATIENT
  Age: 80 Year
  Sex: Female
  Weight: 56.25 kg

DRUGS (1)
  1. FINASTERIDE [Suspect]
     Active Substance: FINASTERIDE
     Indication: Alopecia
     Route: 061

REACTIONS (3)
  - Mammogram abnormal [None]
  - Invasive ductal breast carcinoma [None]
  - Product prescribing issue [None]

NARRATIVE: CASE EVENT DATE: 20240708
